FAERS Safety Report 4872178-7 (Version None)
Quarter: 2006Q1

REPORT INFORMATION
  Report Type: 
  Country: None (occurrence: None)
  Receive Date: 20060103
  Receipt Date: 20051220
  Transmission Date: 20060701
  Serious: Yes (Hospitalization)
  Sender: FDA-Public Use
  Company Number: 108537ISR

PATIENT
  Age: 9 Year
  Sex: Male

DRUGS (5)
  1. ETOPOSIDE [Suspect]
     Dosage: 350 MG/M2   INTRAVENOUS
     Route: 042
  2. CARBOPLATIN [Suspect]
     Dosage: 750 MG/M2   INTRAVENOUS
     Route: 042
  3. CISPLATIN [Suspect]
     Dosage: 80 MG/M2
  4. VINCRISTINE [Suspect]
     Dosage: 1.5 MG/M2
  5. CYCLOPHOSPHAMIDE [Suspect]
     Dosage: INTRAVENOUS (NOS)
     Route: 042

REACTIONS (4)
  - ASCITES [None]
  - HAEMODIALYSIS [None]
  - HEPATIC FAILURE [None]
  - PLEURAL EFFUSION [None]
